FAERS Safety Report 7384718-7 (Version None)
Quarter: 2011Q1

REPORT INFORMATION
  Report Type: 
  Country: None (occurrence: None)
  Receive Date: 20110330
  Receipt Date: 20110324
  Transmission Date: 20110831
  Serious: Yes (Death, Other)
  Sender: FDA-Public Use
  Company Number: PHEH2008US02471

PATIENT
  Sex: Male
  Weight: 112.47 kg

DRUGS (21)
  1. SCOPOLAMINE [Concomitant]
     Dosage: 3 DAYS
     Route: 061
  2. NEXIUM [Concomitant]
     Dosage: 40 MG, QD
  3. ASPIRIN [Concomitant]
     Dosage: 81 MG, QD
  4. LACTULOSE [Concomitant]
     Dosage: 2-3TBSP AT 1-2 X DAY
     Route: 048
  5. NASONEX [Concomitant]
  6. ALLEGRA [Concomitant]
     Dosage: 180 MG, QD
  7. GEMZAR [Concomitant]
  8. PROCRIT [Concomitant]
  9. ALEVE [Concomitant]
  10. PEMETREXED [Concomitant]
     Dosage: UNK
     Dates: start: 20051220, end: 20060615
  11. LIPITOR [Concomitant]
  12. TAXOL [Concomitant]
     Dosage: UNK
     Dates: start: 20051130
  13. PLAVIX [Concomitant]
     Dosage: 75 MG, QD
  14. CARBOPLATIN [Concomitant]
  15. AMITRIPTYLINE [Concomitant]
  16. ZOMETA [Suspect]
     Dosage: 4 MG, UNK
     Dates: start: 20051130, end: 20060323
  17. VICODIN [Concomitant]
  18. NEULASTA [Concomitant]
     Dosage: 6 MG, UNK
     Route: 058
  19. NAVELBINE [Concomitant]
  20. RADIATION [Concomitant]
  21. LEXAPRO [Concomitant]

REACTIONS (36)
  - DEATH [None]
  - NECK PAIN [None]
  - PAIN IN JAW [None]
  - ASTHENIA [None]
  - GINGIVAL DISORDER [None]
  - METASTASES TO BONE [None]
  - DEPRESSION [None]
  - MUSCULOSKELETAL PAIN [None]
  - MENTAL STATUS CHANGES [None]
  - DYSPHAGIA [None]
  - INFECTION [None]
  - FLANK PAIN [None]
  - ANAEMIA [None]
  - PANCYTOPENIA [None]
  - METASTATIC PAIN [None]
  - PATHOLOGICAL FRACTURE [None]
  - WEIGHT INCREASED [None]
  - FACIAL WASTING [None]
  - JAUNDICE [None]
  - PALLOR [None]
  - CEREBRAL ISCHAEMIA [None]
  - LEUKOPENIA [None]
  - LETHARGY [None]
  - GENERAL PHYSICAL HEALTH DETERIORATION [None]
  - METASTASES TO LIVER [None]
  - CONFUSIONAL STATE [None]
  - OSTEONECROSIS OF JAW [None]
  - PAIN [None]
  - JAW DISORDER [None]
  - LUNG CARCINOMA CELL TYPE UNSPECIFIED RECURRENT [None]
  - INTERVERTEBRAL DISC DEGENERATION [None]
  - RASH [None]
  - DYSPNOEA [None]
  - DECREASED APPETITE [None]
  - HAEMATURIA [None]
  - RESTLESSNESS [None]
